FAERS Safety Report 16753560 (Version 1)
Quarter: 2019Q3

REPORT INFORMATION
  Report Type: Spontaneous
  Country: GB (occurrence: GB)
  Receive Date: 20190829
  Receipt Date: 20190829
  Transmission Date: 20191005
  Serious: Yes (Other)
  Sender: FDA-Public Use
  Company Number: GB-TEVA-2019-GB-1098797

PATIENT
  Age: 56 Year
  Sex: Female
  Weight: 53.07 kg

DRUGS (9)
  1. QUETIAPINE. [Concomitant]
     Active Substance: QUETIAPINE
     Dosage: AT NIGHT.
     Dates: start: 20190530
  2. CETRABEN EMOLLIENT CREAM [Concomitant]
     Dosage: APPLY.
     Dates: start: 20190416
  3. LEVOTHYROXINE SODIUM. [Concomitant]
     Active Substance: LEVOTHYROXINE SODIUM
     Dosage: 50UG AND 25UG - IN THE MORNING.
     Dates: start: 20190530
  4. DIAZEPAM. [Concomitant]
     Active Substance: DIAZEPAM
     Dosage: 1 TABLET 3 TIMES DAILY FOR 4 DAYS THEN REDUCE BY 1 TABLET EVERY SECOND DAY.
     Dates: start: 20190605
  5. LAMOTRIGINE. [Suspect]
     Active Substance: LAMOTRIGINE
     Indication: MYOCLONUS
     Dosage: 150 MILLIGRAM FOR EVERY 1 DAYS
     Route: 048
     Dates: start: 20190501, end: 20190503
  6. SIMVASTATIN. [Concomitant]
     Active Substance: SIMVASTATIN
     Dosage: AT NIGHT. 40 MILLIGRAM FOR EVERY 1 DAYS
     Dates: start: 20190530
  7. DOXYCYCLINE. [Concomitant]
     Active Substance: DOXYCYCLINE
     Dosage: 2 IMMEDIATELY THEN ONE DAILY.
     Dates: start: 20190430
  8. CHLORAMPHENICOL [Concomitant]
     Active Substance: CHLORAMPHENICOL
     Dosage: 1-2 DROPS FOUR TIMES PER DAY.
     Dates: start: 20190430
  9. CASSIA [Concomitant]
     Dosage: AT NIGHT.
     Dates: start: 20190530

REACTIONS (2)
  - Condition aggravated [Unknown]
  - Myoclonus [Unknown]

NARRATIVE: CASE EVENT DATE: 20190603
